FAERS Safety Report 8550156-4 (Version None)
Quarter: 2012Q3

REPORT INFORMATION
  Report Type: 
  Country: None (occurrence: None)
  Receive Date: 20120730
  Receipt Date: 20120723
  Transmission Date: 20120928
  Serious: Yes (Death)
  Sender: FDA-Public Use
  Company Number: US-BAYER-2012-023553

PATIENT
  Age: 72 Year
  Sex: Female

DRUGS (17)
  1. OXYCODONE HCL [Concomitant]
     Dosage: 5 MG, PRN
  2. ZOLPIDEM [Concomitant]
     Dosage: 10 MG, QD
  3. GLIMEPIRIDE [Concomitant]
     Dosage: 2 MG, BID
  4. SPIRONOLACTONE [Concomitant]
     Dosage: 25 MG, PRN
  5. RANITIDINE [Concomitant]
     Dosage: 150 MG, BID
  6. OMEPRAZOLE [Concomitant]
     Dosage: 20 MG, QD
  7. NEXAVAR [Suspect]
     Indication: HEPATIC NEOPLASM MALIGNANT
     Dosage: 400 MG, BID
     Route: 048
     Dates: start: 20110614, end: 20120209
  8. CETIRIZINE HCL [Concomitant]
     Dosage: 10 MG, PRN
  9. SINGULAIR [Concomitant]
     Dosage: 10 MG, QD AT BEDTIME
  10. TORSEMIDE [Concomitant]
     Dosage: 20 MG, PRN
  11. CALCIUM D [Concomitant]
     Dosage: 250 MG, QD
  12. QVAR 40 [Concomitant]
     Dosage: 60 ?G, BID
  13. METAXALONE [Concomitant]
     Dosage: 800 MG, PRN
  14. ACEBUTOLOL [Concomitant]
     Dosage: 200 MG, QD
  15. JANUVIA [Concomitant]
     Dosage: 100 MG, QD
  16. AMLODIPINE [Concomitant]
     Dosage: 2.5 MG, QD
  17. PROCHLORPERAZ [Concomitant]
     Dosage: UNK UNK, PRN

REACTIONS (1)
  - HEPATIC NEOPLASM MALIGNANT [None]
